FAERS Safety Report 25106942 (Version 1)
Quarter: 2025Q1

REPORT INFORMATION
  Report Type: Other
  Country: FR (occurrence: FR)
  Receive Date: 20250321
  Receipt Date: 20250321
  Transmission Date: 20250408
  Serious: Yes (Hospitalization)
  Sender: FENNEC PHARMACEUTICALS
  Company Number: FR-FENNEC PHARMACEUTICALS, INC.-2025FEN00033

PATIENT
  Age: 72 Year
  Sex: Male
  Weight: 43 kg

DRUGS (7)
  1. SODIUM THIOSULFATE [Suspect]
     Active Substance: SODIUM THIOSULFATE
     Indication: Calciphylaxis
     Dosage: 3 DOSAGE FORM, 1/WEEK
     Route: 042
     Dates: start: 20240529
  2. ERLEADA [Suspect]
     Active Substance: APALUTAMIDE
     Indication: Prostate cancer
     Dosage: 2400 MG, QD
     Route: 048
     Dates: start: 20230915, end: 20250210
  3. ALBUMIN HUMAN [Concomitant]
     Active Substance: ALBUMIN HUMAN
  4. LOVENOX [Concomitant]
     Active Substance: ENOXAPARIN SODIUM
  5. EUPANTOL [Concomitant]
     Active Substance: PANTOPRAZOLE SODIUM
  6. LERCANIDIPINE [Concomitant]
     Active Substance: LERCANIDIPINE
  7. VENOFER [Concomitant]
     Active Substance: IRON SUCROSE

REACTIONS (2)
  - Chorea [Not Recovered/Not Resolved]
  - Off label use [Unknown]

NARRATIVE: CASE EVENT DATE: 20240529
